FAERS Safety Report 9682914 (Version 5)
Quarter: 2014Q2

REPORT INFORMATION
  Report Type: Spontaneous
  Country: US (occurrence: US)
  Receive Date: 20131112
  Receipt Date: 20140609
  Transmission Date: 20141212
  Serious: Yes (Hospitalization, Other)
  Sender: FDA-Public Use
  Company Number: US-ASTELLAS-2013US011607

PATIENT
  Sex: Male

DRUGS (5)
  1. XTANDI [Suspect]
     Indication: PROSTATE CANCER
     Route: 048
     Dates: start: 20130920, end: 20140314
  2. XTANDI [Suspect]
     Route: 048
     Dates: start: 20131003
  3. FLOMAX [Suspect]
     Indication: PRODUCT USED FOR UNKNOWN INDICATION
     Route: 065
  4. MEGASTROL [Concomitant]
     Indication: PRODUCT USED FOR UNKNOWN INDICATION
     Route: 065
  5. ANTIHYPERTENSIVES [Concomitant]
     Indication: HYPERTENSION
     Route: 065

REACTIONS (13)
  - Drug ineffective [Unknown]
  - Investigation [Unknown]
  - Transurethral prostatectomy [Unknown]
  - Chills [Unknown]
  - Somnolence [Unknown]
  - Decreased appetite [Unknown]
  - Nausea [Unknown]
  - Fatigue [Unknown]
  - Back pain [Recovered/Resolved]
  - Syncope [Recovering/Resolving]
  - Musculoskeletal pain [Recovered/Resolved]
  - Dizziness [Recovering/Resolving]
  - Metastases to bone [Unknown]
